FAERS Safety Report 12738146 (Version 1)
Quarter: 2016Q3

REPORT INFORMATION
  Report Type: Spontaneous
  Country: US (occurrence: US)
  Receive Date: 20160913
  Receipt Date: 20160913
  Transmission Date: 20161109
  Serious: Yes (Other)
  Sender: FDA-Public Use
  Company Number: US-CELGENEUS-USA-2015054919

PATIENT

DRUGS (2)
  1. ABRAXANE [Suspect]
     Active Substance: PACLITAXEL
     Indication: PLASMA CELL MYELOMA
     Route: 050
  2. DEXAMETHASONE. [Concomitant]
     Active Substance: DEXAMETHASONE
     Indication: PLASMA CELL MYELOMA
     Route: 065

REACTIONS (10)
  - Thrombocytopenia [Unknown]
  - Febrile neutropenia [Unknown]
  - Fatigue [Unknown]
  - Plasma cell myeloma [Unknown]
  - Nausea [Unknown]
  - Vomiting [Unknown]
  - Anaemia [Unknown]
  - Peripheral sensory neuropathy [Unknown]
  - Decreased appetite [Unknown]
  - Neutropenia [Unknown]
